FAERS Safety Report 13008114 (Version 1)
Quarter: 2016Q4

REPORT INFORMATION
  Report Type: Report from Study
  Country: US (occurrence: US)
  Receive Date: 20161208
  Receipt Date: 20161208
  Transmission Date: 20170207
  Serious: Yes (Other)
  Sender: FDA-Public Use
  Company Number: US-ROCHE-1864334

PATIENT

DRUGS (1)
  1. ALTEPLASE [Suspect]
     Active Substance: ALTEPLASE
     Indication: CEREBRAL HAEMORRHAGE
     Dosage: INTRACEREBRAL HEMORRHAGE CATHETER
     Route: 065

REACTIONS (1)
  - Cerebral hygroma [Unknown]

NARRATIVE: CASE EVENT DATE: 20161009
